FAERS Safety Report 4822661-5 (Version None)
Quarter: 2005Q4

REPORT INFORMATION
  Report Type: 
  Country: None (occurrence: None)
  Receive Date: 20051108
  Receipt Date: 20051027
  Transmission Date: 20060501
  Serious: Yes (Congenital Anomaly)
  Sender: FDA-Public Use
  Company Number: US-GLAXOSMITHKLINE-A0580363A

PATIENT
  Sex: Female
  Weight: 2.7 kg

DRUGS (2)
  1. COMBIVIR [Suspect]
     Indication: HIV INFECTION
     Dosage: 1TAB TWICE PER DAY
     Dates: start: 20050318, end: 20050820
  2. KALETRA [Concomitant]
     Indication: HIV INFECTION
     Dosage: 3CAP TWICE PER DAY
     Dates: start: 20050318, end: 20050820

REACTIONS (3)
  - ACOUSTIC STIMULATION TESTS ABNORMAL [None]
  - CARDIAC MURMUR [None]
  - DRUG EXPOSURE DURING PREGNANCY [None]
